FAERS Safety Report 21018432 (Version 1)
Quarter: 2022Q2

REPORT INFORMATION
  Report Type: Spontaneous
  Country: CN (occurrence: CN)
  Receive Date: 20220628
  Receipt Date: 20220628
  Transmission Date: 20220721
  Serious: Yes (Other)
  Sender: FDA-Public Use
  Company Number: CN-PFIZER INC-PV202200009718

PATIENT
  Age: 61 Year
  Sex: Male

DRUGS (3)
  1. LINEZOLID [Suspect]
     Active Substance: LINEZOLID
     Indication: Pneumonia
     Dosage: 600 MG, 1X/DAY
     Route: 041
     Dates: start: 20220517, end: 20220527
  2. CEFOPERAZONE\TAZOBACTAM SODIUM [Suspect]
     Active Substance: CEFOPERAZONE\TAZOBACTAM SODIUM
     Indication: Pneumonia
     Dosage: 2.25 G, 1X/DAY
     Route: 041
     Dates: start: 20220527, end: 20220614
  3. DONEPEZIL HYDROCHLORIDE [Suspect]
     Active Substance: DONEPEZIL HYDROCHLORIDE
     Indication: Therapeutic procedure
     Dosage: 5 MG, 1X/DAY
     Route: 045
     Dates: start: 20220602, end: 20220614

REACTIONS (2)
  - Diarrhoea [Recovering/Resolving]
  - Dermatitis contact [Recovering/Resolving]

NARRATIVE: CASE EVENT DATE: 20220607
